FAERS Safety Report 9381823 (Version 1)
Quarter: 2013Q3

REPORT INFORMATION
  Report Type: Spontaneous
  Country: SE (occurrence: SE)
  Receive Date: 20130703
  Receipt Date: 20130703
  Transmission Date: 20140515
  Serious: Yes (Other)
  Sender: FDA-Public Use
  Company Number: SE-ROXANE LABORATORIES, INC.-2013-RO-01072RO

PATIENT
  Age: 32 Year
  Sex: Male

DRUGS (2)
  1. AZATHIOPRINE [Suspect]
     Indication: COLITIS
     Dosage: 200 MG
  2. AZATHIOPRINE [Suspect]
     Dosage: 150 MG

REACTIONS (3)
  - Drug metabolising enzyme increased [Recovered/Resolved]
  - Drug resistance [Recovered/Resolved]
  - Lymphopenia [Unknown]
